FAERS Safety Report 26190698 (Version 1)
Quarter: 2025Q4

REPORT INFORMATION
  Report Type: Spontaneous
  Country: CN (occurrence: CN)
  Receive Date: 20251223
  Receipt Date: 20251223
  Transmission Date: 20260118
  Serious: Yes (Other)
  Sender: RANBAXY
  Company Number: CN-SUN PHARMACEUTICAL INDUSTRIES LTD-2025R1-542800

PATIENT
  Age: 32 Year
  Sex: Female
  Weight: 156 kg

DRUGS (9)
  1. LABETALOL [Suspect]
     Active Substance: LABETALOL
     Indication: Hypertension
     Dosage: 200 MILLIGRAM, TID
     Route: 065
  2. LABETALOL [Suspect]
     Active Substance: LABETALOL
     Dosage: 400 MILLIGRAM, TID
     Route: 065
  3. NIFEDIPINE [Suspect]
     Active Substance: NIFEDIPINE
     Indication: Hypertension
     Dosage: 30 MILLIGRAM, QD
     Route: 065
  4. NIFEDIPINE [Suspect]
     Active Substance: NIFEDIPINE
     Dosage: 30 MILLIGRAM, BID
     Route: 065
  5. SPIRONOLACTONE [Suspect]
     Active Substance: SPIRONOLACTONE
     Indication: Hypertension
     Dosage: 20 MILLIGRAM, QD
     Route: 065
  6. VALSARTAN [Suspect]
     Active Substance: VALSARTAN
     Indication: Hypertension
     Dosage: 100 MILLIGRAM, BID
     Route: 065
  7. AROTINOLOL [Suspect]
     Active Substance: AROTINOLOL
     Indication: Hypertension
     Dosage: 10 MILLIGRAM, BID
     Route: 065
  8. AROTINOLOL [Suspect]
     Active Substance: AROTINOLOL
     Dosage: 15 MILLIGRAM, BID
     Route: 065
  9. TELMISARTAN [Concomitant]
     Active Substance: TELMISARTAN
     Indication: Hypertension
     Dosage: 40 MILLIGRAM, QD
     Route: 065

REACTIONS (1)
  - Exposure during pregnancy [Unknown]
